FAERS Safety Report 22022351 (Version 1)
Quarter: 2023Q1

REPORT INFORMATION
  Report Type: Spontaneous
  Country: IT (occurrence: IT)
  Receive Date: 20230222
  Receipt Date: 20230222
  Transmission Date: 20230417
  Serious: Yes (Other)
  Sender: FDA-Public Use
  Company Number: IT-ALLERGAN-2304921US

PATIENT
  Sex: Female

DRUGS (1)
  1. ASENAPINE MALEATE [Suspect]
     Active Substance: ASENAPINE MALEATE
     Indication: Mood swings
     Dosage: 2.5 MG, QD
     Route: 048

REACTIONS (4)
  - Ill-defined disorder [Unknown]
  - Product taste abnormal [Unknown]
  - Poor quality product administered [Unknown]
  - Off label use [Unknown]
